FAERS Safety Report 21456241 (Version 1)
Quarter: 2022Q4

REPORT INFORMATION
  Report Type: Spontaneous
  Country: US (occurrence: US)
  Receive Date: 20221014
  Receipt Date: 20221014
  Transmission Date: 20230112
  Serious: No
  Sender: FDA-Public Use
  Company Number: US-TEVA-2022-US-2078556

PATIENT
  Age: 61 Year
  Sex: Female
  Weight: 72.12 kg

DRUGS (3)
  1. AJOVY [Suspect]
     Active Substance: FREMANEZUMAB-VFRM
     Indication: Migraine
     Dosage: 1 INJECTION MONTHLY
     Route: 065
     Dates: start: 202112
  2. AJOVY [Suspect]
     Active Substance: FREMANEZUMAB-VFRM
  3. UBRELVY [Concomitant]
     Active Substance: UBROGEPANT
     Indication: Migraine

REACTIONS (6)
  - Injection site urticaria [Recovered/Resolved]
  - Constipation [Unknown]
  - Weight increased [Unknown]
  - Nausea [Unknown]
  - Arthralgia [Unknown]
  - Palpitations [Unknown]
